FAERS Safety Report 20255138 (Version 3)
Quarter: 2022Q2

REPORT INFORMATION
  Report Type: Spontaneous
  Country: US (occurrence: US)
  Receive Date: 20211230
  Receipt Date: 20220511
  Transmission Date: 20220720
  Serious: Yes (Other)
  Sender: FDA-Public Use
  Company Number: US-PFIZER INC-202101836825

PATIENT
  Age: 75 Year
  Sex: Female
  Weight: 77.11 kg

DRUGS (4)
  1. CARDURA [Suspect]
     Active Substance: DOXAZOSIN MESYLATE
     Indication: Hypertension
     Dosage: 2 MG, 2X/DAY (YELLOW TABLET)
     Dates: start: 2019
  2. CARDURA [Suspect]
     Active Substance: DOXAZOSIN MESYLATE
     Dosage: 2 MG, 2X/DAY (YELLOW TABLET)
     Dates: start: 2020
  3. CARDURA [Suspect]
     Active Substance: DOXAZOSIN MESYLATE
     Dosage: 2 MG, 2X/DAY (WHITE TABLET)
     Dates: start: 20211214, end: 20211218
  4. CARDURA [Suspect]
     Active Substance: DOXAZOSIN MESYLATE
     Dosage: 4 MG, 1X/DAY, (ORANGE TABLET)
     Dates: start: 2022, end: 2022

REACTIONS (2)
  - Peripheral swelling [Unknown]
  - Off label use [Unknown]

NARRATIVE: CASE EVENT DATE: 20190101
